FAERS Safety Report 7501411-8 (Version None)
Quarter: 2011Q2

REPORT INFORMATION
  Report Type: 
  Country: None (occurrence: None)
  Receive Date: 20110524
  Receipt Date: 20110523
  Transmission Date: 20111010
  Serious: Yes (Death)
  Sender: FDA-Public Use
  Company Number: JP-PFIZER INC-2011012490

PATIENT
  Age: 87 Year
  Sex: Male

DRUGS (5)
  1. ZITHROMAX [Suspect]
     Indication: PNEUMONIA
     Dosage: 2 G, SINGLE
     Route: 048
     Dates: start: 20110117, end: 20110117
  2. MUCODYNE [Concomitant]
  3. ASPIRIN [Concomitant]
  4. AMLODIPINE [Concomitant]
  5. CALONAL [Concomitant]

REACTIONS (1)
  - CARDIAC ARREST [None]
